FAERS Safety Report 5849955-9 (Version None)
Quarter: 2008Q3

REPORT INFORMATION
  Report Type: 
  Country: None (occurrence: None)
  Receive Date: 20080731
  Receipt Date: 20080409
  Transmission Date: 20090109
  Serious: No
  Sender: FDA-Public Use
  Company Number: US200804002725

PATIENT
  Age: 56 Year
  Sex: Female
  Weight: 88 kg

DRUGS (2)
  1. BYETTA [Suspect]
     Indication: TYPE 2 DIABETES MELLITUS
     Dosage: 5 UG, EACH EVENING, SUBCUTANEOUS
     Route: 058
     Dates: start: 20080404
  2. GLUCOPHAGE [Concomitant]

REACTIONS (8)
  - ASTHENIA [None]
  - DIZZINESS [None]
  - FEELING COLD [None]
  - FEELING HOT [None]
  - HYPERHIDROSIS [None]
  - NAUSEA [None]
  - TREMOR [None]
  - WEIGHT DECREASED [None]
